FAERS Safety Report 9808689 (Version 3)
Quarter: 2015Q4

REPORT INFORMATION
  Report Type: Report from Study
  Country: GB (occurrence: GB)
  Receive Date: 20140110
  Receipt Date: 20151208
  Transmission Date: 20160305
  Serious: Yes (Other)
  Sender: FDA-Public Use
  Company Number: GB-BRISTOL-MYERS SQUIBB COMPANY-18766808

PATIENT
  Age: 32 Year
  Sex: Female

DRUGS (2)
  1. EFAVIRENZ [Suspect]
     Active Substance: EFAVIRENZ
     Indication: ANTIRETROVIRAL THERAPY
     Dosage: 600 MG, QD
     Route: 048
     Dates: start: 20121212
  2. TRUVADA [Concomitant]
     Active Substance: EMTRICITABINE\TENOFOVIR DISOPROXIL FUMARATE
     Indication: ANTIRETROVIRAL THERAPY
     Dosage: 1 DF, UNK
     Route: 048
     Dates: start: 20121212

REACTIONS (6)
  - Neurotoxicity [Unknown]
  - Abnormal dreams [Unknown]
  - Maternal exposure during pregnancy [Recovered/Resolved]
  - Drug level increased [Unknown]
  - Normal newborn [Unknown]
  - Sleep disorder [Unknown]

NARRATIVE: CASE EVENT DATE: 20130611
